FAERS Safety Report 14784967 (Version 1)
Quarter: 2018Q2

REPORT INFORMATION
  Report Type: Spontaneous
  Country: DE (occurrence: DE)
  Receive Date: 20180420
  Receipt Date: 20180420
  Transmission Date: 20180711
  Serious: Yes (Disabling)
  Sender: FDA-Public Use
  Company Number: DE-ASTRAZENECA-2018SE27161

PATIENT
  Age: 62 Year
  Sex: Female
  Weight: 79 kg

DRUGS (8)
  1. BUFORI EASYHALER [Suspect]
     Active Substance: BUDESONIDE\FORMOTEROL FUMARATE
     Indication: ASTHMA
     Dosage: 160UG/4.5UG, DOSES 3 X 120
     Route: 055
     Dates: start: 20180122, end: 20180212
  2. SALBUHEXAL N DOSIERAEROSOL [Concomitant]
  3. VERAPAMIL [Concomitant]
     Active Substance: VERAPAMIL HYDROCHLORIDE
  4. DELTARAN [Concomitant]
  5. L-THYROX HEXAL 100 [Concomitant]
  6. VOMEX A [Concomitant]
     Active Substance: DIMENHYDRINATE
  7. OXAZEPAM. [Concomitant]
     Active Substance: OXAZEPAM
  8. MIRTAZAPINE. [Concomitant]
     Active Substance: MIRTAZAPINE

REACTIONS (1)
  - Tongue fungal infection [Recovering/Resolving]

NARRATIVE: CASE EVENT DATE: 20180212
